FAERS Safety Report 12558124 (Version 6)
Quarter: 2016Q4

REPORT INFORMATION
  Report Type: Report from Study
  Country: None (occurrence: RO)
  Receive Date: 20160714
  Receipt Date: 20161017
  Transmission Date: 20170207
  Serious: Yes (Death, Hospitalization, Other)
  Sender: FDA-Public Use
  Company Number: RO-ABBVIE-16P-135-1675779-00

PATIENT
  Age: 70 Year
  Sex: Male
  Weight: 90 kg

DRUGS (6)
  1. VIEKIRAX [Suspect]
     Active Substance: OMBITASVIR\PARITAPREVIR\RITONAVIR
     Indication: HEPATITIS C
     Dosage: 2-0-0
     Route: 048
     Dates: start: 20160614, end: 20160807
  2. MODERIBA [Suspect]
     Active Substance: RIBAVIRIN
     Indication: HEPATITIS C
     Dosage: 1-0-1
     Route: 048
     Dates: start: 20160614, end: 20160808
  3. MODERIBA [Suspect]
     Active Substance: RIBAVIRIN
     Indication: HEPATIC CIRRHOSIS
  4. VIEKIRAX [Suspect]
     Active Substance: OMBITASVIR\PARITAPREVIR\RITONAVIR
     Indication: HEPATIC CIRRHOSIS
  5. EXVIERA [Suspect]
     Active Substance: DASABUVIR
     Indication: HEPATITIS C
     Dosage: 1-0-1
     Route: 048
     Dates: start: 20160614, end: 20160807
  6. EXVIERA [Suspect]
     Active Substance: DASABUVIR
     Indication: HEPATIC CIRRHOSIS

REACTIONS (28)
  - Hepatic failure [Unknown]
  - Platelet count decreased [Not Recovered/Not Resolved]
  - Decreased appetite [Not Recovered/Not Resolved]
  - Cholelithiasis [Unknown]
  - Jaundice [Recovering/Resolving]
  - Hyperbilirubinaemia [Recovering/Resolving]
  - Chromaturia [Not Recovered/Not Resolved]
  - Ascites [Unknown]
  - Hepatic necrosis [Unknown]
  - Cardiac arrest [Fatal]
  - Acute hepatic failure [Unknown]
  - Hepatotoxicity [Unknown]
  - Weight decreased [Not Recovered/Not Resolved]
  - Depression [Recovering/Resolving]
  - Atrial fibrillation [Recovered/Resolved]
  - Hepatorenal syndrome [Unknown]
  - Palpitations [Not Recovered/Not Resolved]
  - Cholestasis [Unknown]
  - General physical health deterioration [Recovering/Resolving]
  - Atrial fibrillation [Recovered/Resolved]
  - Atrial fibrillation [Unknown]
  - Hypoalbuminaemia [Unknown]
  - Upper gastrointestinal haemorrhage [Unknown]
  - Atrial fibrillation [Recovered/Resolved]
  - Oesophageal varices haemorrhage [Unknown]
  - Gastric varices [Unknown]
  - Electrolyte imbalance [Unknown]
  - Hypovolaemic shock [Unknown]

NARRATIVE: CASE EVENT DATE: 20160614
